FAERS Safety Report 12906787 (Version 1)
Quarter: 2016Q4

REPORT INFORMATION
  Report Type: Spontaneous
  Country: US (occurrence: US)
  Receive Date: 20161101
  Receipt Date: 20161101
  Transmission Date: 20170207
  Serious: Yes (Disabling, Other)
  Sender: FDA-Public Use
  Company Number: None

PATIENT
  Age: 59 Year
  Sex: Male
  Weight: 114.75 kg

DRUGS (7)
  1. LEVAQUIN [Suspect]
     Active Substance: LEVOFLOXACIN
     Indication: PNEUMONIA
     Dosage: ?          QUANTITY:3 IV BAG;?
     Route: 042
  2. SOMA [Concomitant]
     Active Substance: CARISOPRODOL
  3. LEXAPRO [Concomitant]
     Active Substance: ESCITALOPRAM OXALATE
  4. OTEZLA [Concomitant]
     Active Substance: APREMILAST
  5. HYDROCODONE/IBUPROFEN [Concomitant]
     Active Substance: HYDROCODONE\IBUPROFEN
  6. LYRICA [Concomitant]
     Active Substance: PREGABALIN
  7. FARXIGA [Concomitant]
     Active Substance: DAPAGLIFLOZIN PROPANEDIOL

REACTIONS (7)
  - Neuropathy peripheral [None]
  - Fatigue [None]
  - Arthralgia [None]
  - Deafness unilateral [None]
  - Feeling abnormal [None]
  - Tendonitis [None]
  - Pain in extremity [None]

NARRATIVE: CASE EVENT DATE: 20140831
